FAERS Safety Report 4708799-1 (Version None)
Quarter: 2005Q3

REPORT INFORMATION
  Report Type: 
  Country: None (occurrence: None)
  Receive Date: 20050705
  Receipt Date: 20050620
  Transmission Date: 20060218
  Serious: Yes (Hospitalization)
  Sender: FDA-Public Use
  Company Number: S05-FRA-02283-01

PATIENT
  Age: 75 Year
  Sex: Male

DRUGS (2)
  1. EBIXA (MEMANTINE) [Suspect]
     Dosage: 10 MG QD PO
     Route: 048
  2. ARICEPT [Concomitant]

REACTIONS (1)
  - PANCREATITIS ACUTE [None]
